FAERS Safety Report 19189015 (Version 1)
Quarter: 2021Q2

REPORT INFORMATION
  Report Type: Spontaneous
  Country: US (occurrence: US)
  Receive Date: 20210428
  Receipt Date: 20210428
  Transmission Date: 20210717
  Serious: No
  Sender: FDA-Public Use
  Company Number: US-SA-2021SA138809

PATIENT
  Sex: Male

DRUGS (1)
  1. DUPIXENT [Suspect]
     Active Substance: DUPILUMAB
     Indication: NASAL POLYPS
     Dosage: 300 MG, QOW
     Route: 058

REACTIONS (9)
  - Facial discomfort [Unknown]
  - Rhinorrhoea [Unknown]
  - Ear pain [Unknown]
  - Cough [Unknown]
  - Ear discomfort [Unknown]
  - Facial pain [Unknown]
  - Sneezing [Unknown]
  - Condition aggravated [Unknown]
  - Sinusitis [Unknown]

NARRATIVE: CASE EVENT DATE: 2021
